FAERS Safety Report 14989550 (Version 1)
Quarter: 2018Q2

REPORT INFORMATION
  Report Type: Spontaneous
  Country: US (occurrence: US)
  Receive Date: 20180608
  Receipt Date: 20180608
  Transmission Date: 20180711
  Serious: No
  Sender: FDA-Public Use
  Company Number: US-AMGEN-USASP2018043176

PATIENT
  Sex: Female

DRUGS (1)
  1. BLINCYTO [Suspect]
     Active Substance: BLINATUMOMAB
     Indication: LYMPHOMA
     Dosage: 112 MUG, QD
     Route: 065

REACTIONS (3)
  - Off label use [Unknown]
  - Lethargy [Unknown]
  - Confusional state [Unknown]
